FAERS Safety Report 8482127-0 (Version None)
Quarter: 2012Q3

REPORT INFORMATION
  Report Type: 
  Country: None (occurrence: None)
  Receive Date: 20120702
  Receipt Date: 20120621
  Transmission Date: 20120928
  Serious: Yes (Other)
  Sender: FDA-Public Use
  Company Number: US-ASTRAZENECA-2012SE42224

PATIENT
  Age: 68 Year
  Sex: Female
  Weight: 61.7 kg

DRUGS (6)
  1. METOPROLOL TARTRATE [Suspect]
     Dosage: GENERIC
  2. ZOLOFT [Concomitant]
     Indication: ANXIETY
  3. METOPROLOL SUCCINATE EXTENDED RELEASE [Suspect]
     Dosage: GENERIC (PAR PHARMACEUTICAL)
  4. XANAX [Concomitant]
     Indication: ANXIETY
  5. METOPROLOL SUCCINATE EXTENDED RELEASE [Suspect]
     Dosage: GENERIC (WATSON)
  6. TOPROL-XL [Suspect]
     Route: 048

REACTIONS (5)
  - ATRIAL FIBRILLATION [None]
  - DIZZINESS [None]
  - BLOOD PRESSURE ABNORMAL [None]
  - HYPOTENSION [None]
  - ACCIDENTAL EXPOSURE [None]
